FAERS Safety Report 8420143-5 (Version None)
Quarter: 2012Q2

REPORT INFORMATION
  Report Type: 
  Country: None (occurrence: None)
  Receive Date: 20120607
  Receipt Date: 20120523
  Transmission Date: 20120825
  Serious: No
  Sender: FDA-Public Use
  Company Number: US-ASTRAZENECA-2012SE33549

PATIENT
  Age: 60 Year
  Sex: Female

DRUGS (6)
  1. NEXIUM [Suspect]
     Route: 048
  2. NORVASC [Concomitant]
  3. METFORMIN GLUCOPHAGE HYDROCHLORIDE [Concomitant]
  4. SYNTHROID [Concomitant]
  5. LOFIBRA [Concomitant]
  6. DOMPERIDONE [Concomitant]

REACTIONS (2)
  - OFF LABEL USE [None]
  - GASTRIC ULCER [None]
